FAERS Safety Report 13088545 (Version 3)
Quarter: 2017Q1

REPORT INFORMATION
  Report Type: Spontaneous
  Country: TN (occurrence: TN)
  Receive Date: 20170105
  Receipt Date: 20170127
  Transmission Date: 20170428
  Serious: Yes (Death)
  Sender: FDA-Public Use
  Company Number: PHHY2017TN000822

PATIENT
  Age: 67 Year
  Sex: Female

DRUGS (19)
  1. LYSANXIA [Concomitant]
     Active Substance: PRAZEPAM
     Indication: PRODUCT USED FOR UNKNOWN INDICATION
     Dosage: 10 GTT, QD (AT BEDTIME)
     Route: 048
     Dates: start: 20150123
  2. LASILIX [Concomitant]
     Active Substance: FUROSEMIDE
     Indication: PRODUCT USED FOR UNKNOWN INDICATION
     Dosage: 0.5 DF, QD (IN THE MORNING AFTER BREAKFAST FOR 3 MONTHS)
     Route: 048
     Dates: start: 20150123
  3. CLAVOR [Concomitant]
     Indication: PRODUCT USED FOR UNKNOWN INDICATION
     Dosage: 1 DF, BID
     Route: 048
  4. MIFLONIDE [Suspect]
     Active Substance: BUDESONIDE
     Indication: BRONCHITIS
     Dosage: 1 DF (PILL), BID
     Route: 055
     Dates: start: 20150127
  5. MIFLONIDE [Suspect]
     Active Substance: BUDESONIDE
     Indication: RESPIRATORY DISORDER
  6. CLIPTOL [Concomitant]
     Indication: PRODUCT USED FOR UNKNOWN INDICATION
     Dosage: 1 DF (APPLICATION) QD, (ONCE DAILY IN EVENING FOR 7 DAYS)
     Route: 003
     Dates: start: 20150127
  7. APROVEL [Concomitant]
     Active Substance: IRBESARTAN
     Indication: PRODUCT USED FOR UNKNOWN INDICATION
     Dosage: 1 DF, QD (CAPSULE IN THE MORNING AFTER BREAKFAST FOR 3 MONTHS)
     Route: 048
     Dates: start: 20150123
  8. OSMOLAX [Concomitant]
     Indication: PRODUCT USED FOR UNKNOWN INDICATION
     Dosage: 2 DF, QD (FOR 3 DAYS)
     Route: 048
     Dates: start: 20140923
  9. PHYSIOTENS [Concomitant]
     Active Substance: MOXONIDINE
     Indication: PRODUCT USED FOR UNKNOWN INDICATION
     Dosage: 1 DF, TID (MORNING/MIDDAY AND EVENING FOR 3 MONTHS)
     Route: 048
     Dates: start: 20150123
  10. FORADIL [Suspect]
     Active Substance: FORMOTEROL FUMARATE
     Indication: RESPIRATORY DISORDER
  11. INIBREX [Concomitant]
     Indication: PRODUCT USED FOR UNKNOWN INDICATION
     Dosage: 200 MG, UNK (AFTER FOOD FOR 8 DAYS )
     Route: 048
     Dates: start: 20150127
  12. KERLONE [Concomitant]
     Active Substance: BETAXOLOL HYDROCHLORIDE
     Indication: PRODUCT USED FOR UNKNOWN INDICATION
     Dosage: 1 DF, QD (AT MIDDAY, AFTER A MEAL FOR 3 MONTHS)
     Route: 048
     Dates: start: 20150123
  13. INSULATARD HM [Concomitant]
     Active Substance: INSULIN HUMAN
     Indication: PRODUCT USED FOR UNKNOWN INDICATION
     Dosage: 42 IU, BID (MORNING + EVENING)
     Route: 058
     Dates: start: 20140913
  14. NOVADOL [Concomitant]
     Indication: PRODUCT USED FOR UNKNOWN INDICATION
     Dosage: 1 DF, BID
     Route: 048
     Dates: start: 20150127
  15. KARDEGIC [Concomitant]
     Active Substance: ASPIRIN LYSINE
     Indication: PRODUCT USED FOR UNKNOWN INDICATION
     Dosage: 1 DF, QD (AT MIDDAY AFTER A MEAL FOR 3 MONTHS)
     Route: 048
     Dates: start: 20150123
  16. METEOXANE [Concomitant]
     Active Substance: AMOBARBITAL\BELLADONNA LEAF\DIMETHICONE\ERGOTAMINE TARTRATE
     Indication: PRODUCT USED FOR UNKNOWN INDICATION
     Dosage: 1 DF, (FOR 3 DAY)
     Route: 048
     Dates: start: 20140923
  17. FORADIL [Suspect]
     Active Substance: FORMOTEROL FUMARATE
     Indication: BRONCHITIS
     Dosage: 1 DF (PILL), BID
     Route: 055
     Dates: start: 20150127
  18. ZANIDIP [Concomitant]
     Active Substance: LERCANIDIPINE HYDROCHLORIDE
     Indication: PRODUCT USED FOR UNKNOWN INDICATION
     Dosage: 1 DF, QD (AT MIDDAY, AFTER A MEAL FOR 3 MONTHS)
     Route: 048
     Dates: start: 20150123
  19. BELIFAX [Concomitant]
     Indication: PRODUCT USED FOR UNKNOWN INDICATION
     Dosage: 1 DF (PILL), QD (2 BOXES OF 28)
     Route: 048
     Dates: start: 20140923

REACTIONS (7)
  - Dyspnoea [Fatal]
  - Malaise [Fatal]
  - Cough [Fatal]
  - Asphyxia [Fatal]
  - Loss of consciousness [Fatal]
  - Respiratory arrest [Fatal]
  - Cardiac arrest [Fatal]

NARRATIVE: CASE EVENT DATE: 20150127
